FAERS Safety Report 6732405-8 (Version None)
Quarter: 2010Q2

REPORT INFORMATION
  Report Type: 
  Country: None (occurrence: None)
  Receive Date: 20100519
  Receipt Date: 20100511
  Transmission Date: 20101027
  Serious: Yes (Hospitalization)
  Sender: FDA-Public Use
  Company Number: US-MERCK-1005USA01328

PATIENT
  Age: 63 Year
  Sex: Male

DRUGS (5)
  1. PROSCAR [Suspect]
     Indication: BENIGN PROSTATIC HYPERPLASIA
     Route: 048
     Dates: start: 20091001
  2. ATENOLOL [Concomitant]
     Route: 065
  3. PRINIVIL [Concomitant]
     Route: 065
  4. OXYBUTYNIN [Concomitant]
     Route: 065
  5. TERAZOSIN HYDROCHLORIDE [Concomitant]
     Route: 065

REACTIONS (7)
  - ALOPECIA [None]
  - BREAST MASS [None]
  - BREAST PAIN [None]
  - BREAST SWELLING [None]
  - DEEP VEIN THROMBOSIS [None]
  - FEELING ABNORMAL [None]
  - MOOD ALTERED [None]
